FAERS Safety Report 9215155 (Version 1)
Quarter: 2013Q2

REPORT INFORMATION
  Report Type: Report from Study
  Country: DE (occurrence: DE)
  Receive Date: 20130405
  Receipt Date: 20130405
  Transmission Date: 20140414
  Serious: Yes (Death, Hospitalization)
  Sender: FDA-Public Use
  Company Number: DE-BRISTOL-MYERS SQUIBB COMPANY-18720243

PATIENT
  Age: 65 Year
  Sex: Female
  Weight: 46.4 kg

DRUGS (6)
  1. CARBOPLATIN [Suspect]
     Indication: OVARIAN CANCER
     Dosage: 27FEB12-18APR12:AUC(1 IN 1D)?UNK-16JUN12(AUC5,LAST DOSE:15MAY12(340MG1 IN 1 D)?340MG(AUC5)
     Route: 042
     Dates: start: 20120227, end: 20120610
  2. PACLITAXEL [Suspect]
     Indication: OVARIAN CANCER
     Dosage: LAST DOSE:15MAY12(276MG1 IN 1 D)?27FEB12-18APR12(52DYS)?UNK-10JUN12?175MG/M2 (283.5MG)
     Route: 042
     Dates: start: 20120227, end: 20120610
  3. BEVACIZUMAB [Suspect]
     Indication: OVARIAN CANCER
     Dosage: LAST DOSE:15MAY12(15MG/KG,1 IN 1 D)?21MAR12-18APR12?UNK-10JUN12?15MG/KG (810MG)
     Route: 042
     Dates: start: 20120321, end: 20120610
  4. PANTOZOL [Concomitant]
     Dosage: 2 UNITS
     Route: 048
     Dates: start: 20120502
  5. NOVALGIN [Concomitant]
     Indication: PAIN
     Dosage: 2 UNITS
     Route: 048
     Dates: start: 20120502
  6. ZOLPIDEM [Concomitant]
     Dosage: 2 UNITS
     Route: 048
     Dates: start: 20120502

REACTIONS (9)
  - Sepsis [Fatal]
  - Enterocutaneous fistula [Not Recovered/Not Resolved]
  - General physical health deterioration [Not Recovered/Not Resolved]
  - Fatigue [Recovered/Resolved]
  - Nausea [Not Recovered/Not Resolved]
  - Anaemia [Not Recovered/Not Resolved]
  - Weight decreased [Not Recovered/Not Resolved]
  - Decreased appetite [Not Recovered/Not Resolved]
  - Infection [Not Recovered/Not Resolved]
